FAERS Safety Report 9914771 (Version 1)
Quarter: 2014Q1

REPORT INFORMATION
  Report Type: Report from Study
  Country: MY (occurrence: MY)
  Receive Date: 20140220
  Receipt Date: 20140220
  Transmission Date: 20141002
  Serious: Yes (Other)
  Sender: FDA-Public Use
  Company Number: PHHY2014MY020119

PATIENT
  Sex: Female

DRUGS (1)
  1. GLIVEC [Suspect]
     Indication: GASTROINTESTINAL STROMAL TUMOUR
     Dosage: 400 MG, UNK

REACTIONS (2)
  - Cerebral infarction [Unknown]
  - Personality change [Unknown]
